FAERS Safety Report 6317395-4 (Version None)
Quarter: 2009Q3

REPORT INFORMATION
  Report Type: 
  Country: None (occurrence: None)
  Receive Date: 20090820
  Receipt Date: 20090820
  Transmission Date: 20100115
  Serious: Yes (Life-Threatening)
  Sender: FDA-Public Use
  Company Number: None

PATIENT
  Sex: Male
  Weight: 120.6568 kg

DRUGS (8)
  1. SYMLIN [Suspect]
     Indication: TYPE 2 DIABETES MELLITUS
     Dosage: 60 MCG TID (AC) SQ BEGAN EARLY JUNE 2009
     Route: 058
     Dates: start: 20090601
  2. SIMVASTATIN [Suspect]
  3. GLARGINE + ASPART [Concomitant]
  4. PIOGLITAZONE [Suspect]
  5. NIACIN [Concomitant]
  6. FOSINOPRIL SODIUM [Concomitant]
  7. METFORMIN HCL [Concomitant]
  8. ASPIRIN [Concomitant]

REACTIONS (1)
  - PANCREATITIS ACUTE [None]
